FAERS Safety Report 24187207 (Version 2)
Quarter: 2024Q3

REPORT INFORMATION
  Report Type: Spontaneous
  Country: JP (occurrence: JP)
  Receive Date: 20240808
  Receipt Date: 20240812
  Transmission Date: 20241017
  Serious: Yes (Disabling)
  Sender: SANOFI AVENTIS
  Company Number: JP-MLMSERVICE-20240729-PI145458-00249-1

PATIENT
  Age: 72 Year
  Sex: Male
  Weight: 60.7 kg

DRUGS (2)
  1. OXALIPLATIN [Suspect]
     Active Substance: OXALIPLATIN
     Indication: Gastric cancer stage III
     Dosage: UNK
  2. GIMERACIL\OTERACIL\TEGAFUR [Concomitant]
     Active Substance: GIMERACIL\OTERACIL POTASSIUM\TEGAFUR
     Indication: Gastric cancer stage III
     Dosage: UNK

REACTIONS (2)
  - Dropped head syndrome [Recovering/Resolving]
  - Musculoskeletal discomfort [Recovering/Resolving]
